FAERS Safety Report 20725252 (Version 2)
Quarter: 2022Q2

REPORT INFORMATION
  Report Type: Spontaneous
  Country: US (occurrence: US)
  Receive Date: 20220419
  Receipt Date: 20220503
  Transmission Date: 20220720
  Serious: Yes (Hospitalization)
  Sender: FDA-Public Use
  Company Number: US-009507513-2204USA005555

PATIENT
  Sex: Male

DRUGS (3)
  1. VERQUVO [Suspect]
     Active Substance: VERICIGUAT
     Dosage: UNK
     Route: 048
  2. COREG [Concomitant]
     Active Substance: CARVEDILOL
     Dosage: UNK
  3. ENTRESTO [Concomitant]
     Active Substance: SACUBITRIL\VALSARTAN
     Dosage: UNK

REACTIONS (1)
  - Ejection fraction abnormal [Unknown]
